FAERS Safety Report 16569933 (Version 1)
Quarter: 2019Q3

REPORT INFORMATION
  Report Type: Spontaneous
  Country: CA (occurrence: CA)
  Receive Date: 20190715
  Receipt Date: 20190715
  Transmission Date: 20191004
  Serious: Yes (Disabling, Congenital Anomaly)
  Sender: FDA-Public Use
  Company Number: CA-AUROBINDO-AUR-APL-2019-038844

PATIENT

DRUGS (1)
  1. ROSUVASTATIN TABLET [Suspect]
     Active Substance: ROSUVASTATIN
     Indication: HYPERCHOLESTEROLAEMIA
     Dosage: 5.0 MILLIGRAM, ONCE
     Route: 048

REACTIONS (3)
  - Product substitution issue [Unknown]
  - Dizziness [Unknown]
  - Gait inability [Unknown]
